FAERS Safety Report 6987137-8 (Version None)
Quarter: 2010Q3

REPORT INFORMATION
  Report Type: 
  Country: None (occurrence: None)
  Receive Date: 20100913
  Receipt Date: 20100831
  Transmission Date: 20110219
  Serious: Yes (Life-Threatening)
  Sender: FDA-Public Use
  Company Number: 2010EU004511

PATIENT
  Age: 44 Year
  Sex: Male
  Weight: 76.5 kg

DRUGS (5)
  1. FK463 (MICAFUNGIN) INJECTION [Suspect]
     Indication: LIVER TRANSPLANT
     Dosage: 100 MG, UID/QD, IV NOS
     Route: 042
     Dates: start: 20100724, end: 20100726
  2. TACROLIMUS [Suspect]
     Indication: LIVER TRANSPLANT
     Dosage: 3 MG, BID, ORAL
     Route: 048
     Dates: start: 20100723, end: 20100725
  3. CELLCEPT [Concomitant]
  4. VALTREX [Concomitant]
  5. PRECORTALONE [Concomitant]

REACTIONS (6)
  - COMPLICATIONS OF TRANSPLANTED LIVER [None]
  - CONFUSIONAL STATE [None]
  - DIALYSIS [None]
  - HYPERTENSION [None]
  - RENAL FAILURE [None]
  - THERAPEUTIC AGENT TOXICITY [None]
